FAERS Safety Report 4390579-0 (Version None)
Quarter: 2004Q2

REPORT INFORMATION
  Report Type: 
  Country: None (occurrence: None)
  Receive Date: 20040630
  Receipt Date: 20040622
  Transmission Date: 20050107
  Serious: Yes (Other)
  Sender: FDA-Public Use
  Company Number: K200400918

PATIENT
  Age: 40 Year
  Sex: Female

DRUGS (1)
  1. NORDETTE-21 [Suspect]
     Indication: ORAL CONTRACEPTION
     Dosage: 1 TAB, QD, ORAL
     Route: 048
     Dates: start: 20040308, end: 20040601

REACTIONS (1)
  - ASTHMA [None]
